FAERS Safety Report 11231003 (Version 1)
Quarter: 2015Q2

REPORT INFORMATION
  Report Type: Spontaneous
  Country: BD (occurrence: None)
  Receive Date: 20150629
  Receipt Date: 20150629
  Transmission Date: 20150821
  Serious: Yes (Other)
  Sender: FDA-Public Use
  Company Number: None

PATIENT
  Age: 28 Year
  Sex: Male
  Weight: 70 kg

DRUGS (1)
  1. FINASTERIDE 1 MG [Suspect]
     Active Substance: FINASTERIDE
     Indication: ALOPECIA
     Dosage: DAILY, TAKEN UNDER THE TONGUE
     Route: 060

REACTIONS (2)
  - Loss of libido [None]
  - Blood testosterone decreased [None]

NARRATIVE: CASE EVENT DATE: 20120629
